FAERS Safety Report 6153458-4 (Version None)
Quarter: 2009Q2

REPORT INFORMATION
  Report Type: 
  Country: None (occurrence: None)
  Receive Date: 20090413
  Receipt Date: 20090406
  Transmission Date: 20091009
  Serious: Yes (Other)
  Sender: FDA-Public Use
  Company Number: US-AMGEN-US341613

PATIENT
  Sex: Female

DRUGS (4)
  1. NPLATE [Suspect]
     Indication: IDIOPATHIC THROMBOCYTOPENIC PURPURA
     Route: 065
     Dates: start: 20090306, end: 20090327
  2. CORTICOSTEROIDS [Concomitant]
     Route: 065
  3. RITUXIMAB [Concomitant]
     Route: 065
  4. IMMUNOGLOBULINS [Concomitant]
     Route: 042

REACTIONS (1)
  - DRUG INEFFECTIVE [None]
